FAERS Safety Report 11146406 (Version 1)
Quarter: 2015Q2

REPORT INFORMATION
  Report Type: Spontaneous
  Country: US (occurrence: US)
  Receive Date: 20150528
  Receipt Date: 20150528
  Transmission Date: 20150821
  Serious: No
  Sender: FDA-Public Use
  Company Number: US-PFIZER INC-2015163388

PATIENT
  Age: 71 Year
  Sex: Male
  Weight: 88 kg

DRUGS (5)
  1. DOXAZOSIN MESILATE [Suspect]
     Active Substance: DOXAZOSIN MESYLATE
     Indication: BLADDER DISORDER
     Dosage: UNK
     Dates: start: 2015, end: 2015
  2. SIMVASTATIN. [Concomitant]
     Active Substance: SIMVASTATIN
     Indication: BLOOD CHOLESTEROL INCREASED
     Dosage: 20 MG, 1X/DAY
     Dates: start: 2014
  3. ENALAPRIL MALEATE. [Concomitant]
     Active Substance: ENALAPRIL MALEATE
     Indication: CARDIAC DISORDER
     Dosage: 20 MG, 1X/DAY
  4. GLIPIZIDE. [Concomitant]
     Active Substance: GLIPIZIDE
     Indication: TYPE 2 DIABETES MELLITUS
     Dosage: 5 MG, 2X/DAY
  5. ASPIRIN 81 [Concomitant]
     Dosage: 81 MG, 1X/DAY

REACTIONS (18)
  - Pain in extremity [Unknown]
  - Dyspnoea [Unknown]
  - Groin pain [Unknown]
  - Bone pain [Unknown]
  - Pyrexia [Unknown]
  - Hyperhidrosis [Not Recovered/Not Resolved]
  - Anxiety [Unknown]
  - Heart rate increased [Unknown]
  - Irritability [Unknown]
  - Cough [Unknown]
  - Joint swelling [Unknown]
  - Rash [Not Recovered/Not Resolved]
  - Pruritus [Unknown]
  - Muscle spasms [Unknown]
  - Dizziness [Unknown]
  - Confusional state [Unknown]
  - Arthralgia [Not Recovered/Not Resolved]
  - Nausea [Unknown]
